FAERS Safety Report 21481645 (Version 1)
Quarter: 2022Q4

REPORT INFORMATION
  Report Type: Spontaneous
  Country: CN (occurrence: CN)
  Receive Date: 20221020
  Receipt Date: 20221020
  Transmission Date: 20230112
  Serious: Yes (Other)
  Sender: FDA-Public Use
  Company Number: None

PATIENT
  Age: 37 Year
  Sex: Female
  Weight: 49 kg

DRUGS (7)
  1. CYCLOPHOSPHAMIDE [Suspect]
     Active Substance: CYCLOPHOSPHAMIDE
     Indication: Breast cancer female
     Dosage: 890 MG, ONCE DAILY (QD), DILUTED WITH SODIUM CHLORIDE 45 ML, SECOND CHEMOTHERAPY
     Route: 042
     Dates: start: 20220707, end: 20220707
  2. CYCLOPHOSPHAMIDE [Suspect]
     Active Substance: CYCLOPHOSPHAMIDE
     Indication: Chemotherapy
  3. SODIUM CHLORIDE [Suspect]
     Active Substance: SODIUM CHLORIDE
     Indication: Medication dilution
     Dosage: 45 ML, QD, DILUTED IN CYCLOPHOSPHAMIDE 890 MG, SECOND CHEMOTHERAPY
     Route: 042
     Dates: start: 20220707, end: 20220707
  4. SODIUM CHLORIDE [Suspect]
     Active Substance: SODIUM CHLORIDE
     Dosage: 100 ML, QD, DILUTED WITH PHARMORUBICIN 133 MG, SECOND CHEMOTHERAPY
     Route: 041
     Dates: start: 20220707, end: 20220707
  5. EPIRUBICIN [Suspect]
     Active Substance: EPIRUBICIN
     Indication: Breast cancer female
     Dosage: 133 MG, ONCE DAILY (QD), DILUTED IN SODIUM CHLORIDE 100 ML, SECOND CHEMOTHERAPY
     Route: 041
     Dates: start: 20220707, end: 20220707
  6. EPIRUBICIN [Suspect]
     Active Substance: EPIRUBICIN
     Indication: Chemotherapy
  7. AI DUO [Concomitant]
     Indication: Product used for unknown indication
     Dosage: 6 MG, ADMINISTERED ON THIRD DAY
     Route: 058
     Dates: start: 202207

REACTIONS (2)
  - White blood cell count decreased [Recovered/Resolved]
  - Agranulocytosis [Recovered/Resolved]

NARRATIVE: CASE EVENT DATE: 20220718
